FAERS Safety Report 4536321-1 (Version None)
Quarter: 2004Q4

REPORT INFORMATION
  Report Type: 
  Country: None (occurrence: None)
  Receive Date: 20041223
  Receipt Date: 20040707
  Transmission Date: 20050328
  Serious: No
  Sender: FDA-Public Use
  Company Number: US-GLAXOSMITHKLINE-A0517247A

PATIENT
  Age: 68 Year
  Sex: Male

DRUGS (1)
  1. FLONASE [Suspect]
     Indication: RHINITIS
     Dosage: 2PUFF TWICE PER DAY
     Route: 045

REACTIONS (1)
  - DRUG INEFFECTIVE [None]
